FAERS Safety Report 15358726 (Version 2)
Quarter: 2019Q1

REPORT INFORMATION
  Report Type: Spontaneous
  Country: US (occurrence: US)
  Receive Date: 20180906
  Receipt Date: 20190315
  Transmission Date: 20190417
  Serious: No
  Sender: FDA-Public Use
  Company Number: US-PTC THERAPEUTICS, INC.-US-2018PTC000553

PATIENT

DRUGS (3)
  1. EMFLAZA [Suspect]
     Active Substance: DEFLAZACORT
     Indication: DUCHENNE MUSCULAR DYSTROPHY
     Dosage: 12 MG, QD
     Route: 048
     Dates: start: 20180606
  2. EMFLAZA [Suspect]
     Active Substance: DEFLAZACORT
     Dosage: 15 MG, UNK
     Dates: start: 20170614, end: 20180606
  3. ATALUREN [Concomitant]
     Active Substance: ATALUREN
     Indication: PRODUCT USED FOR UNKNOWN INDICATION
     Dosage: UNK
     Route: 065

REACTIONS (4)
  - Growth retardation [Recovering/Resolving]
  - Osteoporosis [Recovering/Resolving]
  - Endocrine disorder [Recovering/Resolving]
  - Weight increased [Unknown]
